FAERS Safety Report 4383270-8 (Version None)
Quarter: 2004Q2

REPORT INFORMATION
  Report Type: 
  Country: None (occurrence: None)
  Receive Date: 20040622
  Receipt Date: 20040622
  Transmission Date: 20050107
  Serious: Yes (Other)
  Sender: FDA-Public Use
  Company Number: None

PATIENT
  Age: 78 Year
  Sex: Male

DRUGS (9)
  1. FORMOTEROL INHALER (CAPS) BY NOVARITIS [Suspect]
     Indication: CHRONIC OBSTRUCTIVE AIRWAYS DISEASE
     Dosage: 12 MCG 2 PUFF BID
  2. DIPHENHYDRAMINE HCL [Concomitant]
  3. NEOMYCIN (POLYMYXIN) [Concomitant]
  4. IPRATOPIUM BROMIDE [Concomitant]
  5. METOPROLOL SUCCINATE [Concomitant]
  6. NITROGLYCERIN [Concomitant]
  7. SOLMETEROL [Concomitant]
  8. TRIAMCINOLONE [Concomitant]
  9. COUMADIN [Concomitant]

REACTIONS (5)
  - CHEST PAIN [None]
  - DYSPNOEA [None]
  - HYPERHIDROSIS [None]
  - NAUSEA [None]
  - PHARMACEUTICAL PRODUCT COMPLAINT [None]
